FAERS Safety Report 6565154-X (Version None)
Quarter: 2010Q1

REPORT INFORMATION
  Report Type: 
  Country: None (occurrence: None)
  Receive Date: 20100201
  Receipt Date: 20100119
  Transmission Date: 20100710
  Serious: Yes (Hospitalization)
  Sender: FDA-Public Use
  Company Number: B0627006A

PATIENT
  Sex: Male

DRUGS (6)
  1. ARIXTRA [Suspect]
     Indication: DRUG USE FOR UNKNOWN INDICATION
     Dosage: 2.5MG PER DAY
     Route: 058
     Dates: end: 20091127
  2. GEMZAR [Suspect]
     Dosage: 1800MG CYCLIC
     Route: 042
     Dates: start: 20090519, end: 20091116
  3. PLAVIX [Suspect]
     Indication: DRUG USE FOR UNKNOWN INDICATION
     Dosage: 75MG PER DAY
     Route: 048
     Dates: end: 20091127
  4. SOLUPRED [Concomitant]
     Indication: DRUG USE FOR UNKNOWN INDICATION
     Dosage: 40MG PER DAY
     Route: 048
  5. ACTISKENAN [Concomitant]
     Indication: DRUG USE FOR UNKNOWN INDICATION
     Dosage: 5MG AS REQUIRED
     Route: 048
  6. DURAGESIC-100 [Concomitant]
     Indication: DRUG USE FOR UNKNOWN INDICATION
     Dosage: 4MCG PER DAY
     Route: 062

REACTIONS (11)
  - ASTHENIA [None]
  - BACTERIAL SEPSIS [None]
  - BLOOD PRESSURE INCREASED [None]
  - CELL DEATH [None]
  - CONVULSION [None]
  - EPISTAXIS [None]
  - HAEMATURIA [None]
  - HAEMOLYSIS [None]
  - HAEMOLYTIC URAEMIC SYNDROME [None]
  - RENAL FAILURE [None]
  - THROMBOCYTOPENIA [None]
